FAERS Safety Report 17306665 (Version 1)
Quarter: 2020Q1

REPORT INFORMATION
  Report Type: Spontaneous
  Country: PT (occurrence: PT)
  Receive Date: 20200123
  Receipt Date: 20200123
  Transmission Date: 20200409
  Serious: Yes (Other)
  Sender: FDA-Public Use
  Company Number: PT-TEVA-2020-PT-1171814

PATIENT
  Age: 33 Year
  Sex: Female

DRUGS (2)
  1. MINIGESTE [Concomitant]
     Active Substance: ETHINYL ESTRADIOL\GESTODENE
  2. TOPIRAMATE. [Suspect]
     Active Substance: TOPIRAMATE
     Indication: MIGRAINE WITH AURA
     Dosage: TAKE 1 25MG CAPSULE AT DINNER (1ST DOSE) AND WOKE UP THE NEXT MORNING WITH BLURRED VISION BILATERALL
     Route: 048
     Dates: start: 20191017, end: 20191017

REACTIONS (2)
  - Macular oedema [Recovered/Resolved]
  - Vision blurred [Recovered/Resolved]

NARRATIVE: CASE EVENT DATE: 20191018
